FAERS Safety Report 8220628-0 (Version None)
Quarter: 2012Q1

REPORT INFORMATION
  Report Type: 
  Country: None (occurrence: None)
  Receive Date: 20120320
  Receipt Date: 20120312
  Transmission Date: 20120608
  Serious: Yes (Other)
  Sender: FDA-Public Use
  Company Number: DE-ASTELLAS-2012US002780

PATIENT
  Age: 79 Year
  Sex: Female

DRUGS (1)
  1. TARCEVA [Suspect]
     Indication: BRONCHIAL CARCINOMA
     Dosage: UNK
     Route: 048

REACTIONS (4)
  - DYSGEUSIA [None]
  - NAUSEA [None]
  - PRURITUS GENERALISED [None]
  - VISUAL ACUITY REDUCED [None]
